FAERS Safety Report 10754663 (Version 1)
Quarter: 2015Q1

REPORT INFORMATION
  Report Type: Spontaneous
  Country: US (occurrence: None)
  Receive Date: 20150130
  Receipt Date: 20150130
  Transmission Date: 20150721
  Serious: No
  Sender: FDA-Public Use
  Company Number: None

PATIENT
  Age: 11 Year
  Sex: Male
  Weight: 40.82 kg

DRUGS (1)
  1. TAMIFLU [Suspect]
     Active Substance: OSELTAMIVIR PHOSPHATE
     Indication: INFLUENZA
     Dosage: 12.5 MLS
     Route: 048
     Dates: start: 20150121, end: 20150125

REACTIONS (3)
  - Screaming [None]
  - Sleep terror [None]
  - Cold sweat [None]

NARRATIVE: CASE EVENT DATE: 20150121
